FAERS Safety Report 5434744-X (Version None)
Quarter: 2007Q3

REPORT INFORMATION
  Report Type: 
  Country: None (occurrence: None)
  Receive Date: 20070831
  Receipt Date: 20070828
  Transmission Date: 20080115
  Serious: Yes (Hospitalization)
  Sender: FDA-Public Use
  Company Number: BR-BRACCO-BRO-011953

PATIENT
  Sex: Female

DRUGS (3)
  1. IOPAMIRON [Suspect]
     Indication: SYNCOPE
     Route: 042
     Dates: start: 20070713, end: 20070713
  2. IOPAMIRON [Suspect]
     Route: 042
     Dates: start: 20070713, end: 20070713
  3. TEGRETOL [Concomitant]
     Route: 050
     Dates: start: 20070501, end: 20070601

REACTIONS (10)
  - ALANINE AMINOTRANSFERASE INCREASED [None]
  - ASPARTATE AMINOTRANSFERASE INCREASED [None]
  - BLISTER [None]
  - BLOOD GLUCOSE DECREASED [None]
  - GAMMA-GLUTAMYLTRANSFERASE INCREASED [None]
  - HEPATITIS [None]
  - PRURITUS [None]
  - PYREXIA [None]
  - SWELLING [None]
  - TYPE IV HYPERSENSITIVITY REACTION [None]
